FAERS Safety Report 11081384 (Version 1)
Quarter: 2015Q2

REPORT INFORMATION
  Report Type: Spontaneous
  Country: US (occurrence: US)
  Receive Date: 20150501
  Receipt Date: 20150501
  Transmission Date: 20150821
  Serious: No
  Sender: FDA-Public Use
  Company Number: US-ABBVIE-14P-163-1271050-00

PATIENT
  Age: 90 Year
  Sex: Female
  Weight: 53.57 kg

DRUGS (2)
  1. ATENOLOL. [Concomitant]
     Active Substance: ATENOLOL
     Indication: HYPERTENSION
  2. CREON [Suspect]
     Active Substance: PANCRELIPASE AMYLASE\PANCRELIPASE LIPASE\PANCRELIPASE PROTEASE
     Indication: PANCREATIC INSUFFICIENCY
     Dosage: WITH MEALS AND SNACKS
     Route: 048
     Dates: start: 201401

REACTIONS (2)
  - Mouth ulceration [Not Recovered/Not Resolved]
  - Lip ulceration [Not Recovered/Not Resolved]

NARRATIVE: CASE EVENT DATE: 201406
